FAERS Safety Report 13831404 (Version 1)
Quarter: 2017Q3

REPORT INFORMATION
  Report Type: Spontaneous
  Country: US (occurrence: US)
  Receive Date: 20170803
  Receipt Date: 20170803
  Transmission Date: 20171127
  Serious: Yes (Other)
  Sender: FDA-Public Use
  Company Number: US-ELI_LILLY_AND_COMPANY-US201708000836

PATIENT
  Age: 79 Year
  Sex: Female

DRUGS (5)
  1. MEDROL [Concomitant]
     Active Substance: METHYLPREDNISOLONE
     Indication: PRODUCT USED FOR UNKNOWN INDICATION
     Route: 065
  2. ZYLOPRIM [Concomitant]
     Active Substance: ALLOPURINOL
     Indication: PRODUCT USED FOR UNKNOWN INDICATION
     Route: 065
  3. ALLOPURINOL. [Concomitant]
     Active Substance: ALLOPURINOL
     Indication: PRODUCT USED FOR UNKNOWN INDICATION
     Route: 065
  4. PROZAC WEEKLY [Suspect]
     Active Substance: FLUOXETINE HYDROCHLORIDE
     Indication: FIBROMYALGIA
     Dosage: UNK
     Route: 065
  5. PROZAC [Suspect]
     Active Substance: FLUOXETINE HYDROCHLORIDE
     Indication: FIBROMYALGIA
     Route: 065

REACTIONS (22)
  - Gastrointestinal disorder [Unknown]
  - Weight increased [Recovered/Resolved]
  - Diabetes mellitus [Unknown]
  - Eye swelling [Unknown]
  - Peripheral swelling [Unknown]
  - Weight decreased [Recovered/Resolved]
  - Retinal disorder [Unknown]
  - Arthritis [Not Recovered/Not Resolved]
  - Hip fracture [Unknown]
  - Scoliosis [Not Recovered/Not Resolved]
  - Eye pruritus [Unknown]
  - Ocular hyperaemia [Unknown]
  - Dizziness [Recovered/Resolved]
  - Gastric ulcer [Unknown]
  - Nephrolithiasis [Recovered/Resolved]
  - Diabetic neuropathy [Not Recovered/Not Resolved]
  - Sleep apnoea syndrome [Unknown]
  - Transient ischaemic attack [Unknown]
  - Feeling abnormal [Recovered/Resolved]
  - Back pain [Unknown]
  - Bronchitis [Unknown]
  - Irritable bowel syndrome [Unknown]
